FAERS Safety Report 18436707 (Version 2)
Quarter: 2020Q4

REPORT INFORMATION
  Report Type: Spontaneous
  Country: FR (occurrence: FR)
  Receive Date: 20201028
  Receipt Date: 20201030
  Transmission Date: 20210114
  Serious: Yes (Hospitalization, Other)
  Sender: FDA-Public Use
  Company Number: FR-BIOVITRUM-2020FR5312

PATIENT
  Age: 87 Year
  Sex: Female

DRUGS (1)
  1. ANAKINRA [Suspect]
     Active Substance: ANAKINRA
     Indication: COVID-19
     Dosage: FOR TOTAL 5 DAYS.
     Route: 065
     Dates: start: 20200404

REACTIONS (7)
  - Jaundice [Recovered/Resolved]
  - Leukocytosis [Unknown]
  - Off label use [Recovered/Resolved]
  - Pyrexia [Unknown]
  - Hypoxia [Unknown]
  - Inflammatory marker increased [Unknown]
  - Gamma-glutamyltransferase increased [Unknown]

NARRATIVE: CASE EVENT DATE: 20200404
